FAERS Safety Report 24575462 (Version 1)
Quarter: 2024Q4

REPORT INFORMATION
  Report Type: Report from Study
  Country: CA (occurrence: CA)
  Receive Date: 20241104
  Receipt Date: 20241104
  Transmission Date: 20250115
  Serious: Yes (Other)
  Sender: CELLTRION
  Company Number: CA-CELLTRION INC.-2024CA005408

PATIENT

DRUGS (2)
  1. TRUXIMA [Suspect]
     Active Substance: RITUXIMAB-ABBS
     Indication: Vasculitis
     Dosage: 536 MG ONCE WEEKLY FOR FOUR WEEKS, THEN 500 MG EVERY SIX MONTHS FOR MAINTENANCE DOSE
     Route: 042
     Dates: start: 20240301
  2. TRUXIMA [Suspect]
     Active Substance: RITUXIMAB-ABBS
     Dosage: 500MG QW FOR 4WKS
     Route: 042

REACTIONS (4)
  - Granulomatosis with polyangiitis [Unknown]
  - Disease recurrence [Unknown]
  - Unevaluable event [Unknown]
  - Off label use [Unknown]
